FAERS Safety Report 25314605 (Version 1)
Quarter: 2025Q2

REPORT INFORMATION
  Report Type: Spontaneous
  Country: ES (occurrence: ES)
  Receive Date: 20250514
  Receipt Date: 20250514
  Transmission Date: 20250716
  Serious: Yes (Hospitalization, Other)
  Sender: NOVO NORDISK
  Company Number: None

PATIENT
  Age: 61 Year
  Sex: Female

DRUGS (10)
  1. SEMAGLUTIDE [Suspect]
     Active Substance: SEMAGLUTIDE
     Indication: Obesity
     Route: 058
     Dates: start: 20250408
  2. FLUOXETINE HYDROCHLORIDE [Concomitant]
     Active Substance: FLUOXETINE HYDROCHLORIDE
     Indication: Persistent depressive disorder
     Route: 048
     Dates: start: 20230127
  3. TRAMADOL/PARACETAMOL KERN [Concomitant]
     Indication: Arthralgia
     Route: 048
     Dates: start: 20231120
  4. LEVOTHYROXINE SODIUM [Concomitant]
     Active Substance: LEVOTHYROXINE SODIUM
     Indication: Hypothyroidism
     Route: 048
     Dates: start: 20241015
  5. NAPROSYN [Concomitant]
     Active Substance: NAPROXEN
     Indication: Stenosis
     Dosage: 500 MG, BID (BREAKFAST AND DINNER)
     Route: 048
     Dates: start: 20241014
  6. PARACETAMOL NORMON [Concomitant]
     Indication: Osteoarthritis
     Dosage: 1 G, TID
     Route: 048
     Dates: start: 20250331
  7. TRAMADOL [Concomitant]
     Active Substance: TRAMADOL
     Indication: Osteoarthritis
     Dosage: 50 MG, TID (BREKFAST, LUNCH, DINNER)
     Route: 048
     Dates: start: 20250331
  8. ENOXAPARIN SODIUM [Concomitant]
     Active Substance: ENOXAPARIN SODIUM
     Indication: Osteoarthritis
     Dosage: 40 MG, QD
     Route: 058
     Dates: start: 20250401
  9. ESOMEPRAZOLE [Concomitant]
     Active Substance: ESOMEPRAZOLE
     Indication: Arthralgia
     Dosage: 20 MG, QD (AT BREAKFAST)
     Route: 048
     Dates: start: 20230404
  10. WEGOVY [Suspect]
     Active Substance: SEMAGLUTIDE
     Indication: Obesity
     Route: 058
     Dates: start: 20250408

REACTIONS (1)
  - Biliary colic [Unknown]

NARRATIVE: CASE EVENT DATE: 20250418
